FAERS Safety Report 15424080 (Version 1)
Quarter: 2018Q3

REPORT INFORMATION
  Report Type: Report from Study
  Country: BR (occurrence: BR)
  Receive Date: 20180925
  Receipt Date: 20180925
  Transmission Date: 20181010
  Serious: Yes (Death, Other)
  Sender: FDA-Public Use
  Company Number: PHHY2018BR046127

PATIENT
  Age: 76 Year
  Sex: Female
  Weight: 52 kg

DRUGS (2)
  1. SANDOSTATIN LAR DEPOT [Suspect]
     Active Substance: OCTREOTIDE ACETATE
     Indication: NEUROENDOCRINE TUMOUR
     Dosage: UNK, QMO
     Route: 030
     Dates: start: 20170811
  2. ACLASTA [Suspect]
     Active Substance: ZOLEDRONIC ACID
     Indication: OSTEOPOROSIS
     Dosage: UNK UNK, Q12MO
     Route: 042
     Dates: start: 20121108, end: 2013

REACTIONS (12)
  - Dizziness [Recovered/Resolved]
  - Vomiting [Unknown]
  - Fatigue [Recovering/Resolving]
  - Blood chromogranin A increased [Unknown]
  - Malaise [Recovering/Resolving]
  - Drug level decreased [Unknown]
  - Depression [Recovering/Resolving]
  - Balance disorder [Unknown]
  - Gait disturbance [Recovered/Resolved]
  - Completed suicide [Fatal]
  - Deafness [Not Recovered/Not Resolved]
  - Movement disorder [Unknown]

NARRATIVE: CASE EVENT DATE: 20171127
